FAERS Safety Report 5275797-1 (Version None)
Quarter: 2007Q1

REPORT INFORMATION
  Report Type: 
  Country: None (occurrence: None)
  Receive Date: 20070326
  Receipt Date: 20070323
  Transmission Date: 20070707
  Serious: Yes (Other)
  Sender: FDA-Public Use
  Company Number: JP-JPN-A200701275

PATIENT
  Age: 8 Year
  Sex: Male
  Weight: 21 kg

DRUGS (6)
  1. RELENZA [Suspect]
     Indication: INFLUENZA
     Dosage: 10MG TWICE PER DAY
     Route: 055
     Dates: start: 20070316, end: 20070321
  2. ASVERIN [Concomitant]
     Indication: DRUG USE FOR UNKNOWN INDICATION
     Dosage: .6G PER DAY
     Route: 048
  3. MUCODYNE [Concomitant]
     Indication: DRUG USE FOR UNKNOWN INDICATION
     Dosage: 1.2G PER DAY
     Route: 048
  4. MUCOSOLVAN [Concomitant]
     Indication: DRUG USE FOR UNKNOWN INDICATION
     Dosage: 1.2G PER DAY
     Route: 048
  5. TRANSAMIN [Concomitant]
     Indication: DRUG USE FOR UNKNOWN INDICATION
     Dosage: 1.2G PER DAY
     Route: 048
  6. CALONAL [Concomitant]
     Indication: DRUG USE FOR UNKNOWN INDICATION
     Dosage: 1.05G PER DAY
     Route: 048

REACTIONS (2)
  - HALLUCINATION [None]
  - SCREAMING [None]
